FAERS Safety Report 19056764 (Version 1)
Quarter: 2021Q1

REPORT INFORMATION
  Report Type: Report from Study
  Country: US (occurrence: US)
  Receive Date: 20210325
  Receipt Date: 20210325
  Transmission Date: 20210420
  Serious: Yes (Other)
  Sender: FDA-Public Use
  Company Number: US-JNJFOC-20210335216

PATIENT
  Age: 45 Year
  Sex: Male

DRUGS (1)
  1. SPRAVATO [Suspect]
     Active Substance: ESKETAMINE
     Indication: DEPRESSION
     Dosage: 84 MG, 1 TOTAL DOSE
     Dates: start: 20210315, end: 20210315

REACTIONS (3)
  - Dissociation [Recovered/Resolved]
  - Sedation [Recovered/Resolved]
  - Blood pressure increased [Unknown]

NARRATIVE: CASE EVENT DATE: 20210315
